FAERS Safety Report 10100747 (Version 1)
Quarter: 2014Q2

REPORT INFORMATION
  Report Type: Spontaneous
  Country: AU (occurrence: AU)
  Receive Date: 20140423
  Receipt Date: 20140423
  Transmission Date: 20141212
  Serious: Yes (Death, Other)
  Sender: FDA-Public Use
  Company Number: PHHY2014AU048013

PATIENT
  Age: 78 Year
  Sex: Male

DRUGS (3)
  1. LEFLUNOMIDE [Suspect]
     Dosage: 10 MG/DAY
  2. LEFLUNOMIDE [Suspect]
     Dosage: 20 MG/DAY
  3. PREDNISOLONE [Concomitant]
     Dosage: 20 MG, UNK

REACTIONS (10)
  - Myocardial infarction [Fatal]
  - Cardiogenic shock [Fatal]
  - Acute myocardial infarction [Unknown]
  - Haematology test abnormal [Unknown]
  - Melaena [Unknown]
  - Syncope [Unknown]
  - Pneumonia [Unknown]
  - Cellulitis [Unknown]
  - Diarrhoea [Unknown]
  - Drug ineffective [Unknown]
